FAERS Safety Report 7821585-9 (Version None)
Quarter: 2011Q4

REPORT INFORMATION
  Report Type: 
  Country: None (occurrence: None)
  Receive Date: 20111018
  Receipt Date: 20110608
  Transmission Date: 20120403
  Serious: No
  Sender: FDA-Public Use
  Company Number: US-ASTRAZENECA-2011SE35217

PATIENT
  Age: 66 Year
  Sex: Female

DRUGS (5)
  1. FENTANYL [Concomitant]
  2. BP MEDICATION [Concomitant]
  3. WELLBUTRIN [Concomitant]
  4. KLONOPIN [Concomitant]
  5. SYMBICORT [Suspect]
     Indication: CHRONIC OBSTRUCTIVE PULMONARY DISEASE
     Dosage: 80/4.5 MCG 2 PUFFS TWICE DAILY AS SHE NEEDS IT
     Route: 055

REACTIONS (3)
  - DISABILITY [None]
  - DRUG DOSE OMISSION [None]
  - WRONG TECHNIQUE IN DRUG USAGE PROCESS [None]
